FAERS Safety Report 8244722-3 (Version None)
Quarter: 2012Q1

REPORT INFORMATION
  Report Type: 
  Country: None (occurrence: None)
  Receive Date: 20120329
  Receipt Date: 20110411
  Transmission Date: 20120608
  Serious: No
  Sender: FDA-Public Use
  Company Number: US-MYLANLABS-2011S1003598

PATIENT
  Age: 61 Year
  Sex: Female

DRUGS (8)
  1. FENTANYL-100 [Suspect]
     Route: 062
  2. FENTANYL-100 [Suspect]
     Route: 062
  3. ANTIBIOTICS [Concomitant]
  4. THYROID [Concomitant]
  5. FENTANYL-100 [Suspect]
     Indication: PAIN
     Dosage: Q72H
     Route: 062
     Dates: start: 20100101
  6. FENTANYL-100 [Suspect]
     Route: 062
  7. FENTANYL-100 [Suspect]
     Route: 062
  8. MORPHINE SULFATE [Concomitant]

REACTIONS (3)
  - MALAISE [None]
  - PAIN [None]
  - DRUG INEFFECTIVE [None]
